FAERS Safety Report 23331719 (Version 1)
Quarter: 2023Q4

REPORT INFORMATION
  Report Type: Spontaneous
  Country: NL (occurrence: NL)
  Receive Date: 20231222
  Receipt Date: 20231222
  Transmission Date: 20240110
  Serious: Yes (Death, Other)
  Sender: FDA-Public Use
  Company Number: NL-TIOFARMA-TIO0000010

PATIENT
  Age: 56 Year
  Sex: Male

DRUGS (5)
  1. PREDNISOLONE [Suspect]
     Active Substance: PREDNISOLONE
     Indication: Immunosuppressant drug therapy
     Route: 065
  2. PREDNISOLONE [Suspect]
     Active Substance: PREDNISOLONE
     Dosage: TAPERED AFTER ONE YEAR OF TRANSPLANTATION.
     Route: 065
  3. TACROLIMUS [Suspect]
     Active Substance: TACROLIMUS
     Indication: Immunosuppressant drug therapy
     Route: 065
  4. TACROLIMUS [Suspect]
     Active Substance: TACROLIMUS
     Dosage: TAPERED AFTER ONE YEAR OF TRANSPLANTATION.
     Route: 065
  5. MYCOPHENOLATE MOFETIL [Suspect]
     Active Substance: MYCOPHENOLATE MOFETIL
     Indication: Immunosuppressant drug therapy
     Dosage: TAPERED AND DISCONTINUED
     Route: 065

REACTIONS (4)
  - Neoplasm progression [Fatal]
  - Metastatic carcinoma of the bladder [Unknown]
  - BK virus infection [Unknown]
  - Ureteric stenosis [Unknown]
